FAERS Safety Report 7664361-2 (Version None)
Quarter: 2011Q3

REPORT INFORMATION
  Report Type: 
  Country: None (occurrence: None)
  Receive Date: 20110806
  Receipt Date: 20110120
  Transmission Date: 20111222
  Serious: No
  Sender: FDA-Public Use
  Company Number: US-ABBOTT-11P-163-0699522-00

PATIENT
  Sex: Female

DRUGS (1)
  1. NIASPAN [Suspect]
     Indication: HYPERLIPIDAEMIA
     Dosage: EVERY NIGHT
     Dates: start: 20101201

REACTIONS (2)
  - FLUSHING [None]
  - ERYTHEMA [None]
